FAERS Safety Report 16053679 (Version 2)
Quarter: 2019Q4

REPORT INFORMATION
  Report Type: Spontaneous
  Country: FR (occurrence: FR)
  Receive Date: 20190308
  Receipt Date: 20191202
  Transmission Date: 20200122
  Serious: Yes (Hospitalization)
  Sender: FDA-Public Use
  Company Number: FR-MYLANLABS-2019M1021435

PATIENT
  Age: 40 Year
  Sex: Male
  Weight: 68 kg

DRUGS (1)
  1. KETOPROFEN. [Suspect]
     Active Substance: KETOPROFEN
     Indication: NECK PAIN
     Dosage: 100 MILLIGRAM, QD
     Route: 048
     Dates: start: 201804

REACTIONS (2)
  - Eosinophilia [Recovered/Resolved]
  - Toxic skin eruption [Recovering/Resolving]

NARRATIVE: CASE EVENT DATE: 201804
